FAERS Safety Report 8153846-0 (Version None)
Quarter: 2012Q1

REPORT INFORMATION
  Report Type: 
  Country: None (occurrence: None)
  Receive Date: 20120221
  Receipt Date: 20120208
  Transmission Date: 20120608
  Serious: Yes (Hospitalization, Other)
  Sender: FDA-Public Use
  Company Number: AU-ELI_LILLY_AND_COMPANY-AU201110008309

PATIENT
  Sex: Female
  Weight: 60 kg

DRUGS (6)
  1. GLUCOSAMINE [Concomitant]
  2. GARLIC [Concomitant]
  3. EVISTA [Suspect]
     Indication: PROPHYLAXIS
     Dosage: 60 MG, QD
     Route: 048
     Dates: start: 20100501
  4. VITAMIN D [Concomitant]
  5. PRILOSEC [Concomitant]
  6. LOVAZA [Concomitant]

REACTIONS (1)
  - PANIC ATTACK [None]
